FAERS Safety Report 5215645-9 (Version None)
Quarter: 2007Q1

REPORT INFORMATION
  Report Type: 
  Country: None (occurrence: None)
  Receive Date: 20070123
  Receipt Date: 20070109
  Transmission Date: 20070707
  Serious: Yes (Hospitalization)
  Sender: FDA-Public Use
  Company Number: US-BRISTOL-MYERS SQUIBB COMPANY-13635800

PATIENT
  Age: 79 Year
  Sex: Female
  Weight: 83 kg

DRUGS (10)
  1. COUMADIN [Suspect]
     Indication: PROPHYLAXIS
     Dosage: ALTERNATES WITH 5MG PO DAILY
  2. COUMADIN [Suspect]
     Indication: THROMBOSIS
     Dosage: ALTERNATES WITH 5MG PO DAILY
  3. KLONOPIN [Concomitant]
     Route: 048
  4. GLYBURIDE [Concomitant]
  5. METFORMIN HCL [Concomitant]
     Route: 048
  6. DIGITEK [Concomitant]
     Dosage: 1 TAB ODD, 2 TABS EVEN DAYS
     Route: 048
  7. PEPCID [Concomitant]
  8. MACRODANTIN [Concomitant]
     Route: 048
  9. ZYLOPRIM [Concomitant]
  10. TOPROL-XL [Concomitant]

REACTIONS (4)
  - BIPOLAR DISORDER [None]
  - INTERNATIONAL NORMALISED RATIO INCREASED [None]
  - OEDEMA PERIPHERAL [None]
  - PROTHROMBIN TIME PROLONGED [None]
